FAERS Safety Report 4644655-5 (Version None)
Quarter: 2005Q2

REPORT INFORMATION
  Report Type: 
  Country: None (occurrence: None)
  Receive Date: 20050422
  Receipt Date: 20050411
  Transmission Date: 20051028
  Serious: Yes (Other)
  Sender: FDA-Public Use
  Company Number: 200410453BFR

PATIENT
  Age: 68 Year
  Sex: Female
  Weight: 68 kg

DRUGS (5)
  1. STALTOR (CERIVASTATIN) [Suspect]
     Indication: DYSLIPIDAEMIA
     Dosage: 0.3 MG, TOTAL DAILY, ORAL
     Route: 048
     Dates: start: 20010101, end: 20010801
  2. LEXOMIL [Concomitant]
  3. ETIOVEN [Concomitant]
  4. LEVOTHYROX [Concomitant]
  5. DOLIPRANE [Concomitant]

REACTIONS (5)
  - AMYOTROPHY [None]
  - FALL [None]
  - PERONEAL MUSCULAR ATROPHY [None]
  - RHABDOMYOLYSIS [None]
  - VIRAL MYOSITIS [None]
